FAERS Safety Report 20758724 (Version 4)
Quarter: 2022Q3

REPORT INFORMATION
  Report Type: Report from Study
  Country: US (occurrence: US)
  Receive Date: 20220427
  Receipt Date: 20220816
  Transmission Date: 20221027
  Serious: No
  Sender: FDA-Public Use
  Company Number: US-NOVARTISTESTPH-NVSC2022US097764

PATIENT
  Sex: Male

DRUGS (2)
  1. COSENTYX [Suspect]
     Active Substance: SECUKINUMAB
     Indication: Psoriasis
     Dosage: 300 MG, (EVERY WEEK X5 WEEKS THEN EVERY 4 WEEKS)
     Route: 058
     Dates: start: 202203
  2. COSENTYX [Suspect]
     Active Substance: SECUKINUMAB
     Dosage: 300 MG (ADMINISTERED 5TH LOADING DOSE)
     Route: 058
     Dates: start: 20220421

REACTIONS (3)
  - Discouragement [Unknown]
  - Skin fissures [Unknown]
  - Drug ineffective [Unknown]
